FAERS Safety Report 24599599 (Version 2)
Quarter: 2025Q1

REPORT INFORMATION
  Report Type: Spontaneous
  Country: US (occurrence: US)
  Receive Date: 20241110
  Receipt Date: 20250101
  Transmission Date: 20250409
  Serious: No
  Sender: SANOFI AVENTIS
  Company Number: US-SA-2024SA323527

PATIENT
  Age: 45 Year
  Sex: Male

DRUGS (1)
  1. FABRAZYME [Suspect]
     Active Substance: AGALSIDASE BETA
     Dosage: 115 (10+105) MG, BIM
     Route: 065
     Dates: end: 20241024

REACTIONS (2)
  - Dehydration [Unknown]
  - Poor venous access [Unknown]

NARRATIVE: CASE EVENT DATE: 20240824
